FAERS Safety Report 24287889 (Version 1)
Quarter: 2024Q3

REPORT INFORMATION
  Report Type: Spontaneous
  Country: US (occurrence: US)
  Receive Date: 20240905
  Receipt Date: 20240905
  Transmission Date: 20241017
  Serious: Yes (Hospitalization, Other)
  Sender: DR REDDYS
  Company Number: US-DRL-USA-SPO/USA/24/0012717

PATIENT
  Age: 33 Year
  Sex: Female

DRUGS (1)
  1. CARBOPROST [Suspect]
     Active Substance: CARBOPROST
     Indication: Uterine leiomyoma

REACTIONS (6)
  - Endometritis [Recovering/Resolving]
  - Pyrexia [Recovering/Resolving]
  - Tachycardia [Recovering/Resolving]
  - Uterine tenderness [Recovering/Resolving]
  - Vaginal haemorrhage [Recovered/Resolved]
  - Product use in unapproved indication [Unknown]
